FAERS Safety Report 26000614 (Version 1)
Quarter: 2025Q4

REPORT INFORMATION
  Report Type: Spontaneous
  Country: JP (occurrence: JP)
  Receive Date: 20251105
  Receipt Date: 20251105
  Transmission Date: 20260117
  Serious: Yes (Hospitalization, Other)
  Sender: ACCORD
  Company Number: JP-Accord-511431

PATIENT
  Age: 62 Year
  Sex: Male

DRUGS (3)
  1. TACROLIMUS [Suspect]
     Active Substance: TACROLIMUS
     Indication: Immunosuppressant drug therapy
  2. EVEROLIMUS [Suspect]
     Active Substance: EVEROLIMUS
     Indication: Immunosuppressant drug therapy
  3. METHYLPREDNISOLONE [Suspect]
     Active Substance: METHYLPREDNISOLONE
     Indication: Immunosuppressant drug therapy

REACTIONS (4)
  - Endocarditis [Recovered/Resolved]
  - COVID-19 [Recovered/Resolved]
  - Corynebacterium infection [Recovered/Resolved]
  - Febrile neutropenia [Recovered/Resolved]
